FAERS Safety Report 10793891 (Version 3)
Quarter: 2015Q1

REPORT INFORMATION
  Report Type: Spontaneous
  Country: US (occurrence: US)
  Receive Date: 20150213
  Receipt Date: 20150316
  Transmission Date: 20150721
  Serious: Yes (Other)
  Sender: FDA-Public Use
  Company Number: US-PFIZER INC-2015050108

PATIENT
  Sex: Female

DRUGS (1)
  1. PREPARATION H COOLING GEL [Suspect]
     Active Substance: PHENYLEPHRINE HYDROCHLORIDE\WITCH HAZEL
     Indication: PRURITUS
     Dosage: ONE APPLICATION, 2X/DAY (FOR THREE DAYS)

REACTIONS (4)
  - Burning sensation [Not Recovered/Not Resolved]
  - Haemorrhage [Unknown]
  - Skin irritation [Recovered/Resolved]
  - Drug intolerance [Recovered/Resolved]
